FAERS Safety Report 18327090 (Version 2)
Quarter: 2020Q4

REPORT INFORMATION
  Report Type: Spontaneous
  Country: JP (occurrence: JP)
  Receive Date: 20200929
  Receipt Date: 20201013
  Transmission Date: 20210113
  Serious: Yes (Hospitalization, Other)
  Sender: FDA-Public Use
  Company Number: JP-JNJFOC-20200935743

PATIENT
  Age: 5 Decade
  Sex: Male

DRUGS (6)
  1. PREZISTA [Suspect]
     Active Substance: DARUNAVIR ETHANOLATE
     Indication: PRODUCT USED FOR UNKNOWN INDICATION
     Dosage: DOSE UNKNOWN
     Route: 048
  2. LAMIVUDINE. [Concomitant]
     Active Substance: LAMIVUDINE
     Dosage: DOSE UNKNOWN
     Route: 048
     Dates: end: 2013
  3. MARAVIROC [Concomitant]
     Active Substance: MARAVIROC
     Dosage: DOSE UNKNOWN
     Route: 048
  4. RALTEGRAVIR POTASSIUM [Concomitant]
     Active Substance: RALTEGRAVIR POTASSIUM
     Dosage: DOSE UNKNOWN
     Route: 048
  5. INTELENCE [Concomitant]
     Active Substance: ETRAVIRINE
     Dosage: DOSE UNKNOWN
     Route: 048
  6. ABACAVIR SULFATE W/LAMIVUDINE [Concomitant]
     Active Substance: ABACAVIR\LAMIVUDINE
     Dosage: DOSE UNKNOWN
     Route: 048

REACTIONS (2)
  - Cytomegalovirus chorioretinitis [Unknown]
  - Enterocolitis [Unknown]
